FAERS Safety Report 9016871 (Version 1)
Quarter: 2013Q1

REPORT INFORMATION
  Report Type: Spontaneous
  Country: US (occurrence: None)
  Receive Date: 20130116
  Receipt Date: 20130116
  Transmission Date: 20140127
  Serious: No
  Sender: FDA-Public Use
  Company Number: US-HORIZON-DUE-0003-2012

PATIENT
  Sex: Female
  Weight: 77.56 kg

DRUGS (4)
  1. DUEXIS [Suspect]
     Indication: ARTHRALGIA
     Dosage: 1 DF ONCE A DAY,  ORAL
     Route: 048
     Dates: start: 20120216, end: 20120229
  2. ALTACE [Concomitant]
  3. ACYCLOVIR [Concomitant]
  4. HYDROCODONE [Concomitant]

REACTIONS (2)
  - Heart rate irregular [None]
  - Chest discomfort [None]
